FAERS Safety Report 23189720 (Version 2)
Quarter: 2024Q1

REPORT INFORMATION
  Report Type: Spontaneous
  Country: PL (occurrence: PL)
  Receive Date: 20231116
  Receipt Date: 20240308
  Transmission Date: 20240410
  Serious: Yes (Death, Other)
  Sender: FDA-Public Use
  Company Number: None

PATIENT
  Age: 67 Year
  Sex: Male
  Weight: 74 kg

DRUGS (37)
  1. TEMOZOLOMIDE [Suspect]
     Active Substance: TEMOZOLOMIDE
     Dosage: 140 MILLIGRAM; 18 DOSES WERE ADMINISTERED
     Route: 048
     Dates: start: 20220613, end: 20220630
  2. MEROPENEM [Concomitant]
     Active Substance: MEROPENEM
     Dosage: 500 MILLIGRAM, Q3D
     Route: 042
     Dates: start: 20220709, end: 20220717
  3. CALCIUM CHLORIDE\MAGNESIUM CHLORIDE\POTASSIUM CHLORIDE\SODIUM ACETATE\ [Concomitant]
     Active Substance: CALCIUM CHLORIDE\MAGNESIUM CHLORIDE\POTASSIUM CHLORIDE\SODIUM ACETATE\SODIUM CHLORIDE\SODIUM CITRATE
     Dosage: 500 MILLILITER, QD
     Route: 042
     Dates: start: 20220630
  4. PLATELETS [Concomitant]
     Active Substance: HUMAN PLATELET, ALLOGENIC
     Dosage: 2 INTERNATIONAL UNIT, Q6M
     Route: 042
     Dates: start: 20220704, end: 20220719
  5. HUMAN RED BLOOD CELL [Concomitant]
     Active Substance: HUMAN RED BLOOD CELL
     Dosage: 2 INTERNATIONAL UNIT, QD
     Route: 042
     Dates: start: 20220709, end: 20220709
  6. TRANEXAMIC ACID [Concomitant]
     Active Substance: TRANEXAMIC ACID
     Dosage: 3X1 AMP I.V.
     Route: 042
     Dates: start: 20220630
  7. VANCOMYCIN [Concomitant]
     Active Substance: VANCOMYCIN
     Dosage: 1 GRAM, QOD
     Route: 042
     Dates: start: 20220712, end: 20220719
  8. INSULIN HUMAN [Concomitant]
     Active Substance: INSULIN HUMAN
     Route: 058
  9. PREDNISONE ACETATE [Concomitant]
     Active Substance: PREDNISONE ACETATE
     Dosage: 2-1-0 TABLE
     Route: 048
     Dates: start: 20220630
  10. VORICONAZOLE [Concomitant]
     Active Substance: VORICONAZOLE
     Dosage: 200 MILLIGRAM, QOD
     Route: 048
     Dates: start: 20220712, end: 20220719
  11. BIOXETIN [FLUOXETINE] [Concomitant]
     Dosage: 1-0-0
     Route: 048
  12. FLUCONAZOLE BAXTER [Concomitant]
     Dosage: 200 MILLIGRAM, QD
     Route: 042
     Dates: start: 20220704, end: 20220712
  13. ETHAMSYLATE [Concomitant]
     Active Substance: ETHAMSYLATE
     Dosage: 3X2TABLETS AFTER.
     Route: 048
     Dates: start: 20220630
  14. INSULIN HUMAN [Concomitant]
     Active Substance: INSULIN HUMAN
     Route: 058
  15. UMAN ALBUMIN [Concomitant]
     Dosage: 1X1 I.V.
     Route: 042
     Dates: start: 20220630
  16. FLUCONAZOL IVAX [Concomitant]
     Dosage: 2X1 P.O.; USED SINCE 21/06/2023 UNTIL 29/06/2023
     Route: 048
     Dates: start: 20230621, end: 20230629
  17. NITRAZEPAM [Concomitant]
     Active Substance: NITRAZEPAM
     Dosage: 0-0-1TABLET
     Route: 048
  18. ACETAMINOPHEN [Concomitant]
     Active Substance: ACETAMINOPHEN
     Dosage: 3X1 FL I.V.
     Route: 042
     Dates: start: 20220630
  19. MEMANTINE HYDROCHLORIDE [Concomitant]
     Active Substance: MEMANTINE HYDROCHLORIDE
     Dosage: 20 MILLIGRAM, QD
     Route: 048
  20. OMEPRAZOLE [Concomitant]
     Active Substance: OMEPRAZOLE
     Dosage: 2X1 AMP. I.V.
     Route: 042
     Dates: start: 20220630
  21. FILGRASTIM [Concomitant]
     Active Substance: FILGRASTIM
     Dosage: 48 MILLION INTERNATIONAL UNIT
     Route: 042
     Dates: start: 20220704, end: 20220719
  22. DEXAMETHASONE [Concomitant]
     Active Substance: DEXAMETHASONE
     Dosage: 2-1-0
     Route: 048
  23. CIPRONEX [CIPROFLOXACIN] [Concomitant]
     Dosage: 1-0-1 ACTING
     Route: 048
  24. CIPRONEX [CIPROFLOXACIN] [Concomitant]
     Dosage: 500 MILLIGRAM, QOD
     Route: 048
     Dates: start: 20220623, end: 20220629
  25. OMEPRAZOLE [Concomitant]
     Active Substance: OMEPRAZOLE
     Dosage: 20 MILLIGRAM, QOD
     Route: 048
  26. ROSUVASTATIN [Concomitant]
     Active Substance: ROSUVASTATIN
     Dosage: 0-0-1
     Route: 048
  27. MEGALL [Concomitant]
     Dosage: 20 MILLILITER, QD
     Route: 042
     Dates: start: 20220630
  28. BISOPROLOL [Concomitant]
     Active Substance: BISOPROLOL\BISOPROLOL FUMARATE
     Dosage: 1-0-0TABLETS
     Route: 048
  29. LISINOPRIL [Concomitant]
     Active Substance: LISINOPRIL
     Dosage: 1-0-0
     Route: 048
  30. TAROMENTIN [AMOXICILLIN TRIHYDRATE;CLAVULANATE POTASSIUM] [Concomitant]
     Dosage: 1.2 GRAM, QOD
     Route: 042
     Dates: start: 20220704, end: 20220708
  31. LAKCID FORTE [Concomitant]
     Dosage: 1X1 P.O.
     Route: 048
     Dates: start: 20220630
  32. DROTAVERINE HYDROCHLORIDE [Concomitant]
     Active Substance: DROTAVERINE HYDROCHLORIDE
     Dosage: 2X1 TABLET, DISCONTINUED ON JUNE 28, 2022
     Route: 048
     Dates: end: 20220628
  33. ENOXAPARIN SODIUM [Concomitant]
     Active Substance: ENOXAPARIN SODIUM
     Dosage: 1X1 S.C.
     Route: 058
  34. TRAMADOL HYDROCHLORIDE [Concomitant]
     Active Substance: TRAMADOL HYDROCHLORIDE
     Dosage: 3X1 TABLET AFTER.
     Route: 048
     Dates: start: 20220630
  35. HYDROXYZINE [Concomitant]
     Active Substance: HYDROXYZINE HYDROCHLORIDE
     Dosage: 10MG-0-25MG
     Route: 048
  36. TRAZODONE HYDROCHLORIDE [Concomitant]
     Active Substance: TRAZODONE HYDROCHLORIDE
     Dosage: 0-0-2/3 TABLETS
     Route: 048
  37. DEXAMETHASONE [Concomitant]
     Active Substance: DEXAMETHASONE
     Dosage: 3X4MG I.V.
     Route: 042
     Dates: start: 20220630

REACTIONS (1)
  - Pancytopenia [Fatal]

NARRATIVE: CASE EVENT DATE: 20220704
